FAERS Safety Report 6169170-1 (Version None)
Quarter: 2009Q2

REPORT INFORMATION
  Report Type: 
  Country: None (occurrence: None)
  Receive Date: 20090424
  Receipt Date: 20081202
  Transmission Date: 20091009
  Serious: No
  Sender: FDA-Public Use
  Company Number: ALL1-2008-03454

PATIENT
  Sex: Female
  Weight: 72.6 kg

DRUGS (2)
  1. VYVANSE [Suspect]
     Indication: ATTENTION DEFICIT/HYPERACTIVITY DISORDER
     Dosage: 120 MG, 1X/DAY:QD, ORAL ; 60 MG, 1X/DAY:QD, ORAL
     Route: 048
     Dates: start: 20081001, end: 20081201
  2. VYVANSE [Suspect]
     Indication: ATTENTION DEFICIT/HYPERACTIVITY DISORDER
     Dosage: 120 MG, 1X/DAY:QD, ORAL ; 60 MG, 1X/DAY:QD, ORAL
     Route: 048
     Dates: start: 20081202

REACTIONS (2)
  - DEHYDRATION [None]
  - OVERDOSE [None]
